FAERS Safety Report 9725211 (Version 1)
Quarter: 2013Q4

REPORT INFORMATION
  Report Type: Spontaneous
  Country: US (occurrence: None)
  Receive Date: 20131202
  Receipt Date: 20131202
  Transmission Date: 20140711
  Serious: Yes (Disabling)
  Sender: FDA-Public Use
  Company Number: None

PATIENT
  Age: 31 Year
  Sex: Female
  Weight: 80.74 kg

DRUGS (1)
  1. SEROQUEL 600 [Suspect]
     Indication: HALLUCINATION, AUDITORY
     Dosage: 3, THREE TIMES DAILY, TAKEN BY MOUTH
     Dates: start: 20130521, end: 20130914

REACTIONS (1)
  - Unevaluable event [None]
